FAERS Safety Report 25342109 (Version 1)
Quarter: 2025Q2

REPORT INFORMATION
  Report Type: Spontaneous
  Country: US (occurrence: US)
  Receive Date: 20250521
  Receipt Date: 20250521
  Transmission Date: 20250717
  Serious: Yes (Other)
  Sender: PFIZER
  Company Number: US-PFIZER INC-PV202500059604

PATIENT

DRUGS (1)
  1. NURTEC ODT [Suspect]
     Active Substance: RIMEGEPANT SULFATE

REACTIONS (6)
  - Migraine [Unknown]
  - Insomnia [Unknown]
  - Vomiting [Unknown]
  - Retching [Unknown]
  - Reaction to excipient [Unknown]
  - Reaction to sweetener [Unknown]
